FAERS Safety Report 5490938-9 (Version None)
Quarter: 2007Q4

REPORT INFORMATION
  Report Type: 
  Country: None (occurrence: None)
  Receive Date: 20071019
  Receipt Date: 20071012
  Transmission Date: 20080405
  Serious: Yes (Hospitalization, Other)
  Sender: FDA-Public Use
  Company Number: US-PFIZER INC-2007086811

PATIENT
  Sex: Male
  Weight: 107 kg

DRUGS (3)
  1. REVATIO [Suspect]
     Indication: PULMONARY HYPERTENSION
     Dates: start: 20070601, end: 20071001
  2. MOBIC [Concomitant]
  3. TOPROL-XL [Concomitant]

REACTIONS (1)
  - PRIAPISM [None]
